FAERS Safety Report 24698822 (Version 1)
Quarter: 2024Q4

REPORT INFORMATION
  Report Type: Other
  Country: US (occurrence: US)
  Receive Date: 20241205
  Receipt Date: 20241205
  Transmission Date: 20250115
  Serious: Yes (Hospitalization, Other)
  Sender: ANI
  Company Number: US-ANIPHARMA-013017

PATIENT
  Age: 68 Year
  Sex: Male

DRUGS (4)
  1. FLUOXETINE [Suspect]
     Active Substance: FLUOXETINE HYDROCHLORIDE
     Indication: Major depression
  2. PRAZOSIN [Concomitant]
     Active Substance: PRAZOSIN
     Indication: Benign prostatic hyperplasia
  3. BUPROPION\DEXTROMETHORPHAN [Concomitant]
     Active Substance: BUPROPION\DEXTROMETHORPHAN
     Indication: Major depression
     Dosage: 105/45MG
     Dates: start: 202308
  4. FLUOXETINE [Suspect]
     Active Substance: FLUOXETINE HYDROCHLORIDE
     Indication: Pain

REACTIONS (3)
  - Toxicity to various agents [Unknown]
  - Serotonin syndrome [Recovered/Resolved]
  - Drug interaction [Unknown]
